FAERS Safety Report 6311695-X (Version None)
Quarter: 2009Q3

REPORT INFORMATION
  Report Type: 
  Country: None (occurrence: None)
  Receive Date: 20090813
  Receipt Date: 20090813
  Transmission Date: 20100115
  Serious: No
  Sender: FDA-Public Use
  Company Number: None

PATIENT
  Sex: Male
  Weight: 59.8748 kg

DRUGS (2)
  1. LEUCOVORIN CALCIUM [Suspect]
     Indication: GASTROINTESTINAL NEOPLASM
     Dosage: FRIDAYS FOR 3 INTERVENOUS
     Dates: start: 20090417
  2. FLUOROURACIL [Suspect]
     Dosage: FEEDING - EPISDODE APRIL 17/09

REACTIONS (1)
  - UNEVALUABLE EVENT [None]
